FAERS Safety Report 7154262-0 (Version None)
Quarter: 2010Q4

REPORT INFORMATION
  Report Type: 
  Country: None (occurrence: None)
  Receive Date: 20101213
  Receipt Date: 20101202
  Transmission Date: 20110411
  Serious: Yes (Hospitalization)
  Sender: FDA-Public Use
  Company Number: IT-PFIZER INC-2010164468

PATIENT
  Age: 67 Year
  Sex: Male

DRUGS (1)
  1. SUTENT [Suspect]
     Indication: RENAL NEOPLASM
     Dosage: 37.5 MG, 1X/DAY
     Route: 048
     Dates: start: 20080729, end: 20080917

REACTIONS (3)
  - ANGINA PECTORIS [None]
  - CHEST PAIN [None]
  - HYPERTENSIVE CRISIS [None]
